FAERS Safety Report 21761024 (Version 1)
Quarter: 2022Q4

REPORT INFORMATION
  Report Type: Spontaneous
  Country: US (occurrence: None)
  Receive Date: 20221220
  Receipt Date: 20221220
  Transmission Date: 20230112
  Serious: No
  Sender: FDA-Public Use
  Company Number: None

PATIENT
  Age: 59 Year
  Sex: Female
  Weight: 66.68 kg

DRUGS (1)
  1. LORAZEPAM [Suspect]
     Active Substance: LORAZEPAM
     Indication: Seizure
     Dosage: FREQUENCY : ONCE;?
     Route: 042
     Dates: start: 20220927, end: 20220927

REACTIONS (5)
  - Hypotension [None]
  - Mental status changes [None]
  - Pain [None]
  - Unresponsive to stimuli [None]
  - Sedation [None]

NARRATIVE: CASE EVENT DATE: 20220927
